FAERS Safety Report 25604400 (Version 3)
Quarter: 2025Q3

REPORT INFORMATION
  Report Type: Report from Study
  Country: US (occurrence: US)
  Receive Date: 20250725
  Receipt Date: 20250904
  Transmission Date: 20251020
  Serious: No
  Sender: SUNOVION
  Company Number: US-SMPA-2025SPA008980AA

PATIENT
  Age: 63 Year
  Sex: Male

DRUGS (10)
  1. ORGOVYX [Suspect]
     Active Substance: RELUGOLIX
     Indication: Prostate cancer
     Route: 048
     Dates: start: 20250708, end: 20250708
  2. ORGOVYX [Suspect]
     Active Substance: RELUGOLIX
     Route: 048
  3. AMLODIPINE [Concomitant]
     Active Substance: AMLODIPINE BESYLATE
  4. CIALIS [Concomitant]
     Active Substance: TADALAFIL
  5. CRESTOR [Concomitant]
     Active Substance: ROSUVASTATIN CALCIUM
  6. EPLERENONE [Concomitant]
     Active Substance: EPLERENONE
  7. LISINOPRIL [Concomitant]
     Active Substance: LISINOPRIL
  8. METOPROLOL [Concomitant]
     Active Substance: METOPROLOL
  9. ROSUVASTATIN [Concomitant]
     Active Substance: ROSUVASTATIN
  10. TADALAFIL [Concomitant]
     Active Substance: TADALAFIL

REACTIONS (4)
  - Heart rate increased [Unknown]
  - Dizziness [Unknown]
  - Hot flush [Unknown]
  - Fatigue [Unknown]

NARRATIVE: CASE EVENT DATE: 20250701
